FAERS Safety Report 10553407 (Version 1)
Quarter: 2014Q4

REPORT INFORMATION
  Report Type: Spontaneous
  Country: JP (occurrence: JP)
  Receive Date: 20141030
  Receipt Date: 20141030
  Transmission Date: 20150529
  Serious: Yes (Other)
  Sender: FDA-Public Use
  Company Number: JP-AMGEN-JPNSP2014083678

PATIENT
  Age: 69 Year
  Sex: Male
  Weight: 60.6 kg

DRUGS (5)
  1. ISOVORIN /06682103/ [Suspect]
     Active Substance: LEUCOVORIN CALCIUM
     Indication: RECTAL CANCER
     Dosage: 335 MG, Q2WEEKS
     Route: 041
     Dates: start: 20131030, end: 20140108
  2. FLUOROURACIL. [Suspect]
     Active Substance: FLUOROURACIL
     Indication: RECTAL CANCER
     Dosage: 670 MG, Q2WEEKS
     Route: 040
     Dates: start: 20131030, end: 20140108
  3. ELPLAT [Suspect]
     Active Substance: OXALIPLATIN
     Indication: RECTAL CANCER
     Dosage: 142 MG, Q2WEEKS
     Route: 041
     Dates: start: 20131030, end: 20140108
  4. VECTIBIX [Suspect]
     Active Substance: PANITUMUMAB
     Indication: RECTAL CANCER
     Dosage: 387 MG, Q2WEEKS
     Route: 041
     Dates: start: 20131030, end: 20140108
  5. FLUOROURACIL. [Suspect]
     Active Substance: FLUOROURACIL
     Dosage: 4020 MG, Q2WEEKS
     Route: 041
     Dates: start: 20131030, end: 20140110

REACTIONS (1)
  - Neutrophil count decreased [Recovering/Resolving]

NARRATIVE: CASE EVENT DATE: 20131126
